FAERS Safety Report 8351280-1 (Version None)
Quarter: 2012Q2

REPORT INFORMATION
  Report Type: 
  Country: None (occurrence: None)
  Receive Date: 20120510
  Receipt Date: 20110622
  Transmission Date: 20120825
  Serious: No
  Sender: FDA-Public Use
  Company Number: US-TEVA-2011002597

PATIENT
  Sex: Female

DRUGS (2)
  1. NUVIGIL [Suspect]
     Indication: HYPERSOMNIA
  2. NUVIGIL [Suspect]
     Indication: NARCOLEPSY
     Route: 048
     Dates: start: 20110520, end: 20110524

REACTIONS (7)
  - DISTURBANCE IN ATTENTION [None]
  - NAUSEA [None]
  - FEELING ABNORMAL [None]
  - MALAISE [None]
  - INITIAL INSOMNIA [None]
  - DECREASED APPETITE [None]
  - DRUG INEFFECTIVE [None]
